FAERS Safety Report 4453469-0 (Version None)
Quarter: 2004Q3

REPORT INFORMATION
  Report Type: 
  Country: None (occurrence: None)
  Receive Date: 20040920
  Receipt Date: 20040906
  Transmission Date: 20050211
  Serious: Yes (Hospitalization, Other)
  Sender: FDA-Public Use
  Company Number: BE-MERCK-0409BEL00008

PATIENT
  Age: 67 Year
  Sex: Female
  Weight: 76 kg

DRUGS (5)
  1. ASPIRIN [Concomitant]
     Indication: PROPHYLAXIS
     Route: 048
     Dates: start: 20010316, end: 20030315
  2. ASPIRIN [Concomitant]
     Route: 048
     Dates: start: 20031120, end: 20040501
  3. CIPROFIBRATE [Concomitant]
     Indication: HYPERCHOLESTEROLAEMIA
     Route: 048
     Dates: start: 19990923, end: 20011209
  4. ZOCOR [Suspect]
     Indication: HYPERCHOLESTEROLAEMIA
     Route: 048
     Dates: end: 20040501
  5. TIBOLONE [Concomitant]
     Route: 048
     Dates: start: 19990923, end: 20040501

REACTIONS (3)
  - INFLAMMATION [None]
  - RHABDOMYOLYSIS [None]
  - THROMBOCYTOPENIA [None]
